FAERS Safety Report 8934654 (Version 1)
Quarter: 2012Q4

REPORT INFORMATION
  Report Type: Report from Study
  Country: GB (occurrence: GB)
  Receive Date: 20121129
  Receipt Date: 20121129
  Transmission Date: 20130627
  Serious: Yes (Life-Threatening, Hospitalization)
  Sender: FDA-Public Use
  Company Number: GB-TEVA-372154ISR

PATIENT
  Age: 55 Year

DRUGS (12)
  1. CEP-701 [Suspect]
     Route: 065
     Dates: start: 20120910
  2. ARA-C [Suspect]
     Route: 065
     Dates: start: 20120910
  3. DAUNORUBICIN [Suspect]
     Route: 065
     Dates: start: 20120910
  4. TAZOCIN [Suspect]
     Route: 065
     Dates: start: 20121116
  5. ITRACONAZOLE [Suspect]
     Route: 065
     Dates: start: 20121029, end: 20121117
  6. MAGNESIUM GLYCEROPHOSPHATE [Suspect]
     Route: 065
     Dates: start: 20121110
  7. DOMPERIDONE [Concomitant]
     Route: 065
     Dates: start: 20121029
  8. GRANISETRON [Concomitant]
     Route: 065
     Dates: start: 20121108
  9. CYCLIZINE [Concomitant]
     Route: 065
     Dates: start: 20121113
  10. PARACETEMOL [Concomitant]
     Route: 065
     Dates: start: 20121116, end: 20121116
  11. ZOPICLONE [Concomitant]
     Dosage: 3.75 Milligram Daily;
     Route: 065
     Dates: start: 20121113, end: 20121114
  12. ACICLOVIR [Concomitant]
     Dates: start: 20121028

REACTIONS (1)
  - Cardio-respiratory arrest [Recovered/Resolved]
